FAERS Safety Report 8381527-7 (Version None)
Quarter: 2012Q2

REPORT INFORMATION
  Report Type: 
  Country: None (occurrence: None)
  Receive Date: 20120523
  Receipt Date: 20120521
  Transmission Date: 20120825
  Serious: Yes (Death, Disabling)
  Sender: FDA-Public Use
  Company Number: US-CELGENEUS-163-21880-10091516

PATIENT
  Sex: Male

DRUGS (9)
  1. REVLIMID [Suspect]
     Dosage: 25 MILLIGRAM
     Route: 048
     Dates: start: 20100701
  2. NEXIUM [Concomitant]
     Route: 065
  3. CIALIS [Concomitant]
     Indication: ERECTILE DYSFUNCTION
     Route: 065
  4. DECADRON [Concomitant]
     Dosage: 12 MILLIGRAM
     Route: 048
     Dates: start: 20081201
  5. ZANTAC [Concomitant]
     Route: 065
  6. ZOMETA [Concomitant]
     Dosage: 3.5 MILLIGRAM
     Route: 041
     Dates: start: 20090301, end: 20100901
  7. FENTANYL-100 [Concomitant]
     Indication: PAIN
     Dosage: 25 MICROGRAM
     Route: 062
     Dates: start: 20090301
  8. REVLIMID [Suspect]
     Dosage: 20 MILLIGRAM
     Route: 048
     Dates: start: 20100901, end: 20101029
  9. REVLIMID [Suspect]
     Indication: MULTIPLE MYELOMA
     Dosage: 15 MILLIGRAM
     Route: 048
     Dates: start: 20100422

REACTIONS (3)
  - MULTIPLE MYELOMA [None]
  - DRUG DOSE OMISSION [None]
  - ABDOMINAL PAIN UPPER [None]
